FAERS Safety Report 21041109 (Version 1)
Quarter: 2022Q3

REPORT INFORMATION
  Report Type: Other
  Country: GB (occurrence: GB)
  Receive Date: 20220705
  Receipt Date: 20220705
  Transmission Date: 20221027
  Serious: Yes (Hospitalization)
  Sender: FDA-Public Use
  Company Number: GB-DEXPHARM-20220895

PATIENT
  Sex: Male

DRUGS (7)
  1. HALOPERIDOL [Interacting]
     Active Substance: HALOPERIDOL
     Dosage: HALOPERIDOL 10 MG
  2. VENLAFAXINE [Interacting]
     Active Substance: VENLAFAXINE HYDROCHLORIDE
     Dosage: VENLAFAXINE 150 MG
  3. LORAZEPAM [Concomitant]
     Active Substance: LORAZEPAM
     Dosage: LORAZEPAM 7.5 MG
  4. BIPERIDEN [Concomitant]
     Active Substance: BIPERIDEN
     Dosage: BIPERIDEN 6 MG
  5. PINDOLOL [Concomitant]
     Active Substance: PINDOLOL
     Dosage: PINDOLOL 5 MG
  6. ROSUVASTATIN [Concomitant]
     Active Substance: ROSUVASTATIN
     Dosage: ROSUVASTATIN 10 MG
  7. ATORVASTATIN [Concomitant]
     Active Substance: ATORVASTATIN
     Dosage: ATORVASTATIN 10 MG

REACTIONS (2)
  - Parkinsonism [Recovered/Resolved]
  - Drug interaction [Recovered/Resolved]
